FAERS Safety Report 10910811 (Version 1)
Quarter: 2015Q1

REPORT INFORMATION
  Report Type: Spontaneous
  Country: GB (occurrence: GB)
  Receive Date: 20150312
  Receipt Date: 20150312
  Transmission Date: 20150721
  Serious: Yes (Congenital Anomaly)
  Sender: FDA-Public Use
  Company Number: PHHY2015GB024743

PATIENT

DRUGS (4)
  1. ARIPIPRAZOLE. [Suspect]
     Active Substance: ARIPIPRAZOLE
     Dosage: (MATERNAL DOSE: 15 MG, QD)
     Route: 064
  2. SERTRALINE [Suspect]
     Active Substance: SERTRALINE HYDROCHLORIDE
     Dosage: (MATERNAL DOSE: 150 MG, QD)
     Route: 064
  3. METFORMIN [Concomitant]
     Active Substance: METFORMIN HYDROCHLORIDE
     Route: 064
  4. FOLIC [Concomitant]
     Route: 064

REACTIONS (1)
  - Dextrocardia [Unknown]
